FAERS Safety Report 14210206 (Version 1)
Quarter: 2017Q4

REPORT INFORMATION
  Report Type: Spontaneous
  Country: FR (occurrence: FR)
  Receive Date: 20171121
  Receipt Date: 20171121
  Transmission Date: 20180321
  Serious: Yes (Death, Hospitalization)
  Sender: FDA-Public Use
  Company Number: FR-PFIZER INC-2017494111

PATIENT
  Age: 25 Year
  Sex: Female

DRUGS (12)
  1. STAGID [Concomitant]
     Active Substance: METFORMIN PAMOATE
     Indication: DIABETES MELLITUS
     Dosage: 700 (UNSPECIFIED UNIT), 3X/DAY
  2. STAGID [Concomitant]
     Active Substance: METFORMIN PAMOATE
     Dosage: 700 (UNSPECIFIED UNIT), 3X/DAY
     Dates: start: 20110203
  3. PARACETAMOL [Concomitant]
     Active Substance: ACETAMINOPHEN
     Dosage: UNK
     Dates: start: 20110202
  4. CYTOTEC [Suspect]
     Active Substance: MISOPROSTOL
     Indication: ABORTION INDUCED
     Dosage: 2 DF, SINGLE
     Route: 067
     Dates: start: 20110202, end: 20110202
  5. VICTOZA [Concomitant]
     Active Substance: LIRAGLUTIDE
     Indication: DIABETES MELLITUS
     Dosage: EVERY MORNING
  6. IMPLANON [Concomitant]
     Active Substance: ETONOGESTREL
     Dosage: UNK
     Dates: start: 20110203
  7. INSULIN [Concomitant]
     Active Substance: INSULIN NOS
     Indication: DIABETES MELLITUS
     Dosage: UNK
     Dates: end: 20110202
  8. VICTOZA [Concomitant]
     Active Substance: LIRAGLUTIDE
     Dosage: EVERY MORNING
     Dates: start: 20110203
  9. AUGMENTIN [Concomitant]
     Active Substance: AMOXICILLIN\CLAVULANATE POTASSIUM
     Dosage: UNK
     Dates: start: 20110202
  10. DIAMICRON [Concomitant]
     Active Substance: GLICLAZIDE
     Dosage: 2 UNK, UNK
     Dates: start: 20110203
  11. DIAMICRON [Concomitant]
     Active Substance: GLICLAZIDE
     Indication: DIABETES MELLITUS
     Dosage: 2 UNK, UNK
  12. PERFALGAN [Concomitant]
     Active Substance: ACETAMINOPHEN
     Indication: HYPERTHERMIA
     Dosage: 1 G, SINGLE
     Dates: start: 20110202

REACTIONS (6)
  - Diarrhoea [Unknown]
  - Product use in unapproved indication [Unknown]
  - Death [Fatal]
  - Vomiting [Unknown]
  - Pyrexia [Unknown]
  - Vaginal haemorrhage [Unknown]

NARRATIVE: CASE EVENT DATE: 201102
